FAERS Safety Report 13081710 (Version 1)
Quarter: 2017Q1

REPORT INFORMATION
  Report Type: Spontaneous
  Country: JP (occurrence: JP)
  Receive Date: 20170103
  Receipt Date: 20170103
  Transmission Date: 20170428
  Serious: Yes (Other)
  Sender: FDA-Public Use
  Company Number: JP-PFIZER INC-2016600440

PATIENT
  Age: 8 Year
  Sex: Male

DRUGS (5)
  1. FLUDARABINE [Suspect]
     Active Substance: FLUDARABINE PHOSPHATE
     Indication: ACUTE MYELOID LEUKAEMIA
     Dosage: UNK (TWO COURSES OF FLAG-IDA (FLUDARABINE, CYTARABINE, G-CSF, AND IDARUBICIN)
  2. IDARUBICIN HCL [Suspect]
     Active Substance: IDARUBICIN HYDROCHLORIDE
     Indication: ACUTE MYELOID LEUKAEMIA
     Dosage: UNK (TWO COURSES OF FLAG-IDA (FLUDARABINE, CYTARABINE, G-CSF, AND IDARUBICIN)
  3. GEMTUZUMAB OZOGAMICIN [Suspect]
     Active Substance: GEMTUZUMAB OZOGAMICIN
     Indication: ACUTE MYELOID LEUKAEMIA
     Dosage: UNK
  4. CYTARABINE. [Suspect]
     Active Substance: CYTARABINE
     Indication: ACUTE MYELOID LEUKAEMIA
     Dosage: UNK (TWO COURSES OF FLAG-IDA (FLUDARABINE, CYTARABINE, G-CSF, AND IDARUBICIN)
  5. FLUDARABINE [Suspect]
     Active Substance: FLUDARABINE PHOSPHATE
     Dosage: 125 MG/M2, UNK

REACTIONS (4)
  - Thrombocytopenia [Unknown]
  - Proteinuria [Unknown]
  - Haematuria [Unknown]
  - Hypertension [Unknown]
